FAERS Safety Report 12170441 (Version 2)
Quarter: 2016Q2

REPORT INFORMATION
  Report Type: Spontaneous
  Country: US (occurrence: US)
  Receive Date: 20160311
  Receipt Date: 20160404
  Transmission Date: 20160815
  Serious: Yes (Life-Threatening, Hospitalization, Other)
  Sender: FDA-Public Use
  Company Number: US-009507513-1603USA004918

PATIENT
  Sex: Female

DRUGS (1)
  1. KEYTRUDA [Suspect]
     Active Substance: PEMBROLIZUMAB
     Indication: LUNG NEOPLASM MALIGNANT
     Dosage: UNK; THE PATIENT HAD THREE DOSES OF KEYTRUDA
     Route: 042

REACTIONS (2)
  - Haemolytic anaemia [Unknown]
  - Immune thrombocytopenic purpura [Unknown]
